FAERS Safety Report 13721817 (Version 1)
Quarter: 2017Q3

REPORT INFORMATION
  Report Type: Spontaneous
  Country: CH (occurrence: CH)
  Receive Date: 20170706
  Receipt Date: 20170706
  Transmission Date: 20171127
  Serious: Yes (Hospitalization)
  Sender: FDA-Public Use
  Company Number: PHHY2017CH094750

PATIENT
  Age: 45 Year
  Sex: Female

DRUGS (5)
  1. MITOMYCIN. [Suspect]
     Active Substance: MITOMYCIN
     Indication: ANAL CANCER
     Dosage: 1.2 MG/M2, QID
     Route: 013
  2. METHOTREXATE. [Suspect]
     Active Substance: METHOTREXATE
     Indication: ANAL CANCER
     Dosage: 27.5 MG/M2, QID
     Route: 013
  3. BLEOMYCIN [Suspect]
     Active Substance: BLEOMYCIN SULFATE
     Indication: ANAL CANCER
     Dosage: 10 MG, QD
     Route: 042
  4. 5-FLUOROURACIL [Suspect]
     Active Substance: FLUOROURACIL
     Indication: ANAL CANCER
     Dosage: 275 MG/M2, QID
     Route: 013
  5. CISPLATIN. [Suspect]
     Active Substance: CISPLATIN
     Indication: ANAL CANCER
     Dosage: 8.5 MG/M2, QID
     Route: 013

REACTIONS (7)
  - Vomiting [Recovered/Resolved]
  - Chest pain [Recovered/Resolved]
  - Cardiogenic shock [Recovered/Resolved]
  - Nausea [Recovered/Resolved]
  - Hypotension [Recovered/Resolved]
  - Loss of consciousness [Recovered/Resolved]
  - Stress cardiomyopathy [Recovered/Resolved]
